FAERS Safety Report 5796269-1 (Version None)
Quarter: 2008Q2

REPORT INFORMATION
  Report Type: 
  Country: None (occurrence: None)
  Receive Date: 20080618
  Receipt Date: 20070720
  Transmission Date: 20081010
  Serious: Yes (Other)
  Sender: FDA-Public Use
  Company Number: 200715283US

PATIENT
  Age: 52 Year
  Sex: Female

DRUGS (16)
  1. LANTUS [Suspect]
     Indication: TYPE 2 DIABETES MELLITUS
     Dosage: 15 U QD
     Dates: start: 20070720
  2. OPTICLIK [Suspect]
     Indication: TYPE 2 DIABETES MELLITUS
     Dates: start: 20070720
  3. METFORMIN HCL [Concomitant]
  4. PIOGLITAZONE [Concomitant]
  5. LIPITOR [Concomitant]
  6. DILTIAZEM HCL [Concomitant]
  7. ATENOLOL [Concomitant]
  8. ZETIA [Concomitant]
  9. ASPIRIN [Concomitant]
  10. CLOPIDOGREL (PLAVIX /01220701/) [Concomitant]
  11. HYDROCHLOROTHIAZIDE [Concomitant]
  12. ISOSORBIDE DINITRATE [Concomitant]
  13. LASIX [Concomitant]
  14. QUETIAPINE FUMARATE (SEROQUEL /01270902/) [Concomitant]
  15. CLONAZEPAM (CLONOPIN) [Concomitant]
  16. AMBIEN [Concomitant]

REACTIONS (2)
  - FEELING HOT [None]
  - HYPERGLYCAEMIA [None]
